FAERS Safety Report 6213910-X (Version None)
Quarter: 2009Q2

REPORT INFORMATION
  Report Type: 
  Country: None (occurrence: None)
  Receive Date: 20090604
  Receipt Date: 20090527
  Transmission Date: 20091009
  Serious: Yes (Death)
  Sender: FDA-Public Use
  Company Number: US-BAXTER-2009BH001012

PATIENT
  Age: 51 Year
  Sex: Male

DRUGS (6)
  1. ARALAST [Suspect]
     Indication: ALPHA-1 ANTI-TRYPSIN DEFICIENCY
     Route: 042
     Dates: start: 20041210
  2. NAPROXEN [Concomitant]
  3. PROCRIT [Concomitant]
     Indication: ANAEMIA
  4. PREDNISONE [Concomitant]
  5. DILAUDID [Concomitant]
  6. CIPRO [Concomitant]

REACTIONS (1)
  - DEATH [None]
